FAERS Safety Report 10359063 (Version 2)
Quarter: 2014Q3

REPORT INFORMATION
  Report Type: Spontaneous
  Country: US (occurrence: US)
  Receive Date: 20140804
  Receipt Date: 20140804
  Transmission Date: 20150326
  Serious: No
  Sender: FDA-Public Use
  Company Number: US-BRISTOL-MYERS SQUIBB COMPANY-20694162

PATIENT
  Age: 75 Year
  Sex: Male

DRUGS (1)
  1. ABILIFY [Suspect]
     Active Substance: ARIPIPRAZOLE
     Indication: DEPRESSION
     Dosage: 5MG
     Route: 048

REACTIONS (2)
  - Drug dose omission [Unknown]
  - Product label issue [Unknown]

NARRATIVE: CASE EVENT DATE: 201401
